FAERS Safety Report 5534370-8 (Version None)
Quarter: 2007Q4

REPORT INFORMATION
  Report Type: 
  Country: None (occurrence: None)
  Receive Date: 20071120
  Receipt Date: 20061120
  Transmission Date: 20080405
  Serious: Yes (Death)
  Sender: FDA-Public Use
  Company Number: HQWYE256121NOV06

PATIENT
  Age: 58 Year
  Sex: Male
  Weight: 72.64 kg

DRUGS (1)
  1. ZOSYN [Suspect]
     Dosage: 156 TOTAL DOSE
     Dates: start: 20050707, end: 20050826

REACTIONS (1)
  - HYPERSENSITIVITY [None]
